FAERS Safety Report 14109806 (Version 1)
Quarter: 2017Q4

REPORT INFORMATION
  Report Type: Spontaneous
  Country: US (occurrence: US)
  Receive Date: 20171020
  Receipt Date: 20171020
  Transmission Date: 20180321
  Serious: No
  Sender: FDA-Public Use
  Company Number: US-TEVA-749251USA

PATIENT
  Age: 23 Year
  Sex: Female

DRUGS (1)
  1. ESTRADIOL. [Suspect]
     Active Substance: ESTRADIOL
     Indication: OESTROGEN DEFICIENCY
     Dates: start: 20140106

REACTIONS (4)
  - Product solubility abnormal [Unknown]
  - Constipation [Unknown]
  - Irritable bowel syndrome [Unknown]
  - Abdominal distension [Unknown]
